FAERS Safety Report 14851949 (Version 1)
Quarter: 2018Q2

REPORT INFORMATION
  Report Type: Spontaneous
  Country: US (occurrence: US)
  Receive Date: 20180419
  Receipt Date: 20180419
  Transmission Date: 20180711
  Serious: No
  Sender: FDA-Public Use
  Company Number: None

PATIENT
  Age: 7 Year
  Sex: Male
  Weight: 29.57 kg

DRUGS (4)
  1. GUANFACINE ER [Suspect]
     Active Substance: GUANFACINE
     Indication: IMPULSIVE BEHAVIOUR
     Route: 048
     Dates: start: 20180419
  2. GUANFACINE ER [Suspect]
     Active Substance: GUANFACINE
     Indication: PSYCHOMOTOR HYPERACTIVITY
     Route: 048
     Dates: start: 20180419
  3. GUANFACINE ER [Suspect]
     Active Substance: GUANFACINE
     Indication: TIC
     Route: 048
     Dates: start: 20180419
  4. GUANFACINE ER [Suspect]
     Active Substance: GUANFACINE
     Indication: DRUG EFFECT VARIABLE
     Route: 048
     Dates: start: 20180419

REACTIONS (5)
  - Attention deficit/hyperactivity disorder [None]
  - Tic [None]
  - Condition aggravated [None]
  - Impulsive behaviour [None]
  - Drug effect variable [None]
